FAERS Safety Report 5256033-9 (Version None)
Quarter: 2007Q1

REPORT INFORMATION
  Report Type: 
  Country: None (occurrence: None)
  Receive Date: 20070306
  Receipt Date: 20070223
  Transmission Date: 20070707
  Serious: Yes (Other)
  Sender: FDA-Public Use
  Company Number: DK-RB-005429-07

PATIENT
  Age: 69 Year
  Sex: Male

DRUGS (3)
  1. TEMGESIC (BUPRENORPHINE HYDROCHLORIDE) [Suspect]
     Indication: PAIN
     Route: 060
     Dates: start: 20061122, end: 20061125
  2. TRANSTEC [Suspect]
     Indication: PAIN
     Route: 062
     Dates: start: 20061119, end: 20061121
  3. KETOGAN [Concomitant]
     Indication: DRUG USE FOR UNKNOWN INDICATION
     Route: 065
     Dates: start: 20061015, end: 20061120

REACTIONS (4)
  - CONFUSIONAL STATE [None]
  - DELUSION [None]
  - FEELING ABNORMAL [None]
  - MEMORY IMPAIRMENT [None]
